FAERS Safety Report 6221224-7 (Version None)
Quarter: 2009Q2

REPORT INFORMATION
  Report Type: 
  Country: None (occurrence: None)
  Receive Date: 20090610
  Receipt Date: 20090602
  Transmission Date: 20091009
  Serious: Yes (Hospitalization)
  Sender: FDA-Public Use
  Company Number: JP-PFIZER INC-2009223304

PATIENT
  Age: 62 Year

DRUGS (7)
  1. SUNITINIB MALATE [Suspect]
     Indication: RENAL CELL CARCINOMA
     Dosage: 50 MG, 1X/DAY
     Route: 048
     Dates: start: 20090418, end: 20090501
  2. INTERFERON ALFA [Concomitant]
     Dates: start: 20090101, end: 20090401
  3. MAXIPIME [Concomitant]
     Route: 042
     Dates: start: 20090420, end: 20090510
  4. HALCION [Concomitant]
     Dosage: UNK
     Route: 048
     Dates: start: 20090420
  5. JUVELA NICOTINATE [Concomitant]
     Dosage: UNK
     Route: 048
     Dates: start: 20090427
  6. CYANOCOBALAMIN [Concomitant]
     Dosage: UNK
     Route: 048
     Dates: start: 20090427
  7. PRORENAL [Concomitant]
     Dosage: UNK
     Route: 048
     Dates: start: 20090427

REACTIONS (1)
  - CEREBRAL HAEMORRHAGE [None]
